FAERS Safety Report 18324120 (Version 1)
Quarter: 2020Q3

REPORT INFORMATION
  Report Type: Spontaneous
  Country: US (occurrence: US)
  Receive Date: 20200928
  Receipt Date: 20200928
  Transmission Date: 20201103
  Serious: Yes (Hospitalization)
  Sender: FDA-Public Use
  Company Number: US-ANIPHARMA-2020-US-018226

PATIENT
  Age: 13 Year
  Sex: Male

DRUGS (7)
  1. PERPHENAZINE. [Concomitant]
     Active Substance: PERPHENAZINE
     Dosage: 8 MG 3 TIMES DAILY
  2. TRAZODONE [Concomitant]
     Active Substance: TRAZODONE HYDROCHLORIDE
     Dosage: 300 MG AT BEDTIME
  3. CLOBAZAM. [Concomitant]
     Active Substance: CLOBAZAM
     Dosage: 0.5 MG/KG/DAY
  4. LITHIUM CARBONATE (NON?SPECIFIC) [Suspect]
     Active Substance: LITHIUM
     Indication: AGGRESSION
     Dosage: 600 MG EVERY MORNING, 300 MG EVERY EVENING, 600 MG AT BEDTIME
  5. CANNABIDIOL [Suspect]
     Active Substance: CANNABIDIOL
     Indication: SEIZURE
     Dosage: 10 MG/KG/DAY
  6. QUETIAPINE. [Concomitant]
     Active Substance: QUETIAPINE
     Dosage: 200 MG TWICE DAILY, 400 MG AT BEDTIME
  7. FELBAMATE. [Concomitant]
     Active Substance: FELBAMATE
     Dosage: 24 MG/KG/DAY

REACTIONS (2)
  - Toxicity to various agents [Recovered/Resolved]
  - Drug interaction [Recovered/Resolved]
